FAERS Safety Report 6978169-4 (Version None)
Quarter: 2010Q3

REPORT INFORMATION
  Report Type: 
  Country: None (occurrence: None)
  Receive Date: 20100913
  Receipt Date: 20100902
  Transmission Date: 20110219
  Serious: Yes (Other)
  Sender: FDA-Public Use
  Company Number: IE-BAYER-201038301GPV

PATIENT
  Sex: Female

DRUGS (2)
  1. MIRENA [Suspect]
     Indication: CONTRACEPTION
     Route: 015
     Dates: start: 20100902, end: 20100902
  2. PONSTAN [Concomitant]

REACTIONS (3)
  - EYE SWELLING [None]
  - HYPERSENSITIVITY [None]
  - RASH GENERALISED [None]
